FAERS Safety Report 16318072 (Version 3)
Quarter: 2020Q4

REPORT INFORMATION
  Report Type: Spontaneous
  Country: US (occurrence: US)
  Receive Date: 20190516
  Receipt Date: 20201230
  Transmission Date: 20210113
  Serious: Yes (Hospitalization, Other)
  Sender: FDA-Public Use
  Company Number: US-GLAXOSMITHKLINE-US2019GSK087351

PATIENT
  Age: 66 Year
  Sex: Male

DRUGS (10)
  1. ESOMEPRAZOLE. [Suspect]
     Active Substance: ESOMEPRAZOLE MAGNESIUM
     Indication: GASTRINOMA
     Dosage: 20 MG, BID
     Route: 065
     Dates: start: 2017, end: 2019
  2. NEXIUM [Suspect]
     Active Substance: ESOMEPRAZOLE MAGNESIUM
     Indication: GASTRINOMA
     Dosage: 20 MG, BID
     Route: 065
     Dates: start: 2001, end: 2008
  3. PRILOSEC [Suspect]
     Active Substance: OMEPRAZOLE MAGNESIUM
     Indication: GASTRINOMA
     Dosage: 20 MG, BID
     Route: 065
     Dates: start: 1989, end: 2005
  4. PREVACID [Suspect]
     Active Substance: LANSOPRAZOLE
     Indication: GASTRINOMA
     Dosage: 20 MG, BID
     Route: 065
     Dates: start: 2005, end: 2010
  5. NEXIUM [Suspect]
     Active Substance: ESOMEPRAZOLE MAGNESIUM
     Dosage: 40 MG, QD
     Dates: start: 20090124, end: 20100701
  6. PREVACID 24 HR [Suspect]
     Active Substance: LANSOPRAZOLE
     Indication: GASTRINOMA
     Dosage: 20 MG, BID
     Route: 065
     Dates: start: 2010, end: 2015
  7. LANSOPRAZOLE ACTAVIS [Suspect]
     Active Substance: LANSOPRAZOLE
     Indication: GASTRINOMA
     Dosage: 30 MG, BID
     Route: 065
     Dates: start: 2010
  8. OMEPRAZOLE                         /00661202/ [Suspect]
     Active Substance: OMEPRAZOLE SODIUM
     Indication: GASTRINOMA
     Dosage: 20 MG, BID
     Route: 065
     Dates: start: 2005, end: 2008
  9. NEXIUM 24HR [Suspect]
     Active Substance: ESOMEPRAZOLE MAGNESIUM
     Indication: GASTRINOMA
     Dosage: 20 MG, BID
     Route: 065
     Dates: start: 2014, end: 2015
  10. PROTONIX [Suspect]
     Active Substance: PANTOPRAZOLE SODIUM
     Indication: PRODUCT USED FOR UNKNOWN INDICATION
     Dosage: 40 MG, QD
     Route: 048
     Dates: start: 20090726, end: 20160205

REACTIONS (10)
  - Acute kidney injury [Unknown]
  - Renal transplant [Unknown]
  - Renal mass [Unknown]
  - Nephrolithiasis [Unknown]
  - Chronic kidney disease [Not Recovered/Not Resolved]
  - Hypertensive nephropathy [Unknown]
  - Renal neoplasm [Unknown]
  - Single functional kidney [Unknown]
  - Renal cyst [Unknown]
  - Nocturia [Unknown]

NARRATIVE: CASE EVENT DATE: 201107
